FAERS Safety Report 13781085 (Version 1)
Quarter: 2017Q3

REPORT INFORMATION
  Report Type: Spontaneous
  Country: US (occurrence: US)
  Receive Date: 20170723
  Receipt Date: 20170723
  Transmission Date: 20171127
  Serious: Yes (Disabling)
  Sender: FDA-Public Use
  Company Number: None

PATIENT
  Age: 50 Year
  Sex: Female
  Weight: 67.5 kg

DRUGS (8)
  1. MULTI VITAMIN [Concomitant]
     Active Substance: VITAMINS
  2. CALCIUM [Concomitant]
     Active Substance: CALCIUM
  3. VITAMIN D [Concomitant]
     Active Substance: CHOLECALCIFEROL
  4. VITAMIN B [Concomitant]
     Active Substance: VITAMIN B
  5. ENTOCORT TAPER [Concomitant]
  6. VALIUM [Concomitant]
     Active Substance: DIAZEPAM
  7. TECFIDERA [Suspect]
     Active Substance: DIMETHYL FUMARATE
     Indication: MULTIPLE SCLEROSIS
     Dosage: ?          OTHER STRENGTH:MG;QUANTITY:1 CAPSULE(S);?
     Route: 048
     Dates: start: 20131101, end: 20140320
  8. VSL-3 PROBIOTIC [Concomitant]

REACTIONS (7)
  - Diarrhoea [None]
  - Loss of personal independence in daily activities [None]
  - Pain [None]
  - Asthenia [None]
  - Malaise [None]
  - Colitis [None]
  - Dizziness [None]

NARRATIVE: CASE EVENT DATE: 20140320
